FAERS Safety Report 16793659 (Version 1)
Quarter: 2019Q3

REPORT INFORMATION
  Report Type: Spontaneous
  Country: US (occurrence: US)
  Receive Date: 20190911
  Receipt Date: 20190911
  Transmission Date: 20191005
  Serious: No
  Sender: FDA-Public Use
  Company Number: US-GLENMARK PHARMACEUTICALS-2019GMK041460

PATIENT

DRUGS (1)
  1. CLOBETASOL PROPIONATE FOAM, 0.05% [Suspect]
     Active Substance: CLOBETASOL PROPIONATE
     Indication: PSORIASIS
     Dosage: UNK, BID
     Route: 061
     Dates: start: 20190514, end: 20190520

REACTIONS (5)
  - Device issue [Unknown]
  - Drug dose omission by device [Unknown]
  - Product physical consistency issue [Unknown]
  - Application site dryness [Recovered/Resolved]
  - Poor quality product administered [Unknown]

NARRATIVE: CASE EVENT DATE: 201905
